FAERS Safety Report 21156411 (Version 1)
Quarter: 2022Q3

REPORT INFORMATION
  Report Type: Spontaneous
  Country: TH (occurrence: TH)
  Receive Date: 20220801
  Receipt Date: 20220801
  Transmission Date: 20221027
  Serious: Yes (Other)
  Sender: FDA-Public Use
  Company Number: TH-PADAGIS-2022PAD00247

PATIENT

DRUGS (3)
  1. DOXORUBICIN [Suspect]
     Active Substance: DOXORUBICIN
     Indication: Testis cancer
     Dosage: (ONE CYCLE) (SECOND-LINE PALLIATIVE CHEMOTHERAPY REGIMEN)
     Route: 065
  2. CYCLOPHOSPHAMIDE [Suspect]
     Active Substance: CYCLOPHOSPHAMIDE
     Indication: Testis cancer
     Dosage: (ONE CYCLE) (SECOND-LINE PALLIATIVE CHEMOTHERAPY REGIMEN)
     Route: 065
  3. VINCRISTINE [Suspect]
     Active Substance: VINCRISTINE
     Indication: Testis cancer
     Dosage: (ONE CYCLE) (SECOND-LINE PALLIATIVE CHEMOTHERAPY REGIMEN)
     Route: 065

REACTIONS (3)
  - Pancytopenia [Unknown]
  - Sepsis [Unknown]
  - Product use in unapproved indication [Unknown]
